FAERS Safety Report 24204315 (Version 1)
Quarter: 2024Q3

REPORT INFORMATION
  Report Type: Spontaneous
  Country: US (occurrence: US)
  Receive Date: 20240813
  Receipt Date: 20240813
  Transmission Date: 20241016
  Serious: Yes (Other)
  Sender: AUROBINDO
  Company Number: US-MLMSERVICE-20240724-PI141983-00057-1

PATIENT
  Age: 76 Year
  Sex: Female

DRUGS (5)
  1. ATORVASTATIN [Interacting]
     Active Substance: ATORVASTATIN
     Indication: Product used for unknown indication
     Dosage: 20 MILLIGRAM, ONCE A DAY
     Route: 065
  2. DABRAFENIB [Interacting]
     Active Substance: DABRAFENIB
     Indication: Non-small cell lung cancer stage IV
     Dosage: 150 MILLIGRAM, TWO TIMES A DAY
     Route: 048
  3. TRAMETINIB [Interacting]
     Active Substance: TRAMETINIB
     Indication: Non-small cell lung cancer stage IV
     Dosage: 2 MILLIGRAM, ONCE A DAY
     Route: 048
  4. LISINOPRIL [Concomitant]
     Active Substance: LISINOPRIL
     Indication: Product used for unknown indication
     Dosage: 40 MILLIGRAM, ONCE A DAY (INCREASED)
     Route: 065
  5. LISINOPRIL [Concomitant]
     Active Substance: LISINOPRIL
     Dosage: 20 MILLIGRAM, ONCE A DAY
     Route: 065

REACTIONS (4)
  - Drug-induced liver injury [Recovered/Resolved]
  - Granulomatous liver disease [Recovered/Resolved]
  - Cholestatic liver injury [Recovered/Resolved]
  - Drug interaction [Recovered/Resolved]

NARRATIVE: CASE EVENT DATE: 20220901
